FAERS Safety Report 10189941 (Version 1)
Quarter: 2014Q2

REPORT INFORMATION
  Report Type: Spontaneous
  Country: IT (occurrence: IT)
  Receive Date: 20140522
  Receipt Date: 20140522
  Transmission Date: 20141212
  Serious: Yes (Hospitalization)
  Sender: FDA-Public Use
  Company Number: IT-MYLANLABS-2014S1011000

PATIENT
  Age: 70 Year
  Sex: Female

DRUGS (3)
  1. PACLITAXEL [Suspect]
     Indication: BREAST CANCER
     Route: 042
     Dates: start: 20140410, end: 20140424
  2. ONDANSETRON KABI [Concomitant]
     Indication: PREMEDICATION
     Route: 042
     Dates: start: 20140410, end: 20140424
  3. SOLU CORTEF [Concomitant]
     Indication: PREMEDICATION
     Route: 042
     Dates: start: 20140410, end: 20140424

REACTIONS (2)
  - Rash maculo-papular [Recovering/Resolving]
  - Skin ulcer [Recovering/Resolving]
